FAERS Safety Report 14483060 (Version 1)
Quarter: 2018Q1

REPORT INFORMATION
  Report Type: Spontaneous
  Country: US (occurrence: US)
  Receive Date: 20180202
  Receipt Date: 20180202
  Transmission Date: 20180509
  Serious: Yes (Other)
  Sender: FDA-Public Use
  Company Number: None

PATIENT
  Age: 31 Year
  Sex: Female
  Weight: 72.58 kg

DRUGS (1)
  1. IMPLANON [Suspect]
     Active Substance: ETONOGESTREL
     Indication: CONTRACEPTION
     Dosage: ROUTE - GIVEN UNDER THE SKIN
     Route: 058
     Dates: start: 20180202

REACTIONS (5)
  - Depression [None]
  - Depressed mood [None]
  - Mood swings [None]
  - Anger [None]
  - Crying [None]

NARRATIVE: CASE EVENT DATE: 20180202
